FAERS Safety Report 6883432-1 (Version None)
Quarter: 2010Q3

REPORT INFORMATION
  Report Type: 
  Country: None (occurrence: None)
  Receive Date: 20100729
  Receipt Date: 20100721
  Transmission Date: 20110219
  Serious: Yes (Death, Other)
  Sender: FDA-Public Use
  Company Number: US-CELGENEUS-163-21880-10071853

PATIENT
  Sex: Male

DRUGS (2)
  1. REVLIMID [Suspect]
     Indication: MULTIPLE MYELOMA
     Route: 048
     Dates: start: 20100101, end: 20100301
  2. REVLIMID [Suspect]
     Route: 048
     Dates: start: 20070816

REACTIONS (7)
  - ASPIRATION [None]
  - BALANCE DISORDER [None]
  - DEEP VEIN THROMBOSIS [None]
  - FAILURE TO THRIVE [None]
  - INFECTION [None]
  - NEUROPATHY PERIPHERAL [None]
  - RESPIRATORY ARREST [None]
